FAERS Safety Report 8727343 (Version 3)
Quarter: 2014Q2

REPORT INFORMATION
  Report Type: Spontaneous
  Country: US (occurrence: US)
  Receive Date: 20120816
  Receipt Date: 20140426
  Transmission Date: 20141212
  Serious: No
  Sender: FDA-Public Use
  Company Number: US-ASTRAZENECA-2012SE55325

PATIENT
  Age: 60 Year
  Sex: Female

DRUGS (4)
  1. SEROQUEL XR [Suspect]
     Indication: DEPRESSION
     Route: 048
  2. SEROQUEL XR [Suspect]
     Indication: DEPRESSION
     Route: 048
  3. CITILOPRAM [Concomitant]
  4. WELLBUTRIN [Concomitant]

REACTIONS (8)
  - Crying [Unknown]
  - Depression [Unknown]
  - Headache [Unknown]
  - Tachyphrenia [Unknown]
  - Anxiety [Unknown]
  - Insomnia [Unknown]
  - Feeling abnormal [Unknown]
  - Drug dose omission [Unknown]
